FAERS Safety Report 8112566-9 (Version None)
Quarter: 2012Q1

REPORT INFORMATION
  Report Type: 
  Country: None (occurrence: None)
  Receive Date: 20120203
  Receipt Date: 20120130
  Transmission Date: 20120608
  Serious: Yes (Other)
  Sender: FDA-Public Use
  Company Number: US-ROCHE-784657

PATIENT
  Sex: Female
  Weight: 70.37 kg

DRUGS (3)
  1. ACCUTANE [Suspect]
     Dates: start: 20040101, end: 20040401
  2. ACCUTANE [Suspect]
     Dosage: 40MG QD INCREASED TO 60 MGQD
     Route: 065
     Dates: start: 19980801, end: 19990201
  3. ACCUTANE [Suspect]
     Indication: ACNE
     Dosage: FORM STRENGTH: 20MG AND 40MG
     Route: 065
     Dates: start: 19970901, end: 19980218

REACTIONS (7)
  - COLITIS ULCERATIVE [None]
  - DRY EYE [None]
  - ANXIETY [None]
  - INFLAMMATORY BOWEL DISEASE [None]
  - STRESS [None]
  - BLOOD CHOLESTEROL INCREASED [None]
  - DRY SKIN [None]
